FAERS Safety Report 25161278 (Version 1)
Quarter: 2025Q2

REPORT INFORMATION
  Report Type: Spontaneous
  Country: US (occurrence: US)
  Receive Date: 20250404
  Receipt Date: 20250404
  Transmission Date: 20250716
  Serious: No
  Sender: PFIZER
  Company Number: US-PFIZER INC-202500071240

PATIENT
  Age: 53 Year
  Sex: Female

DRUGS (12)
  1. IBRANCE [Suspect]
     Active Substance: PALBOCICLIB
     Indication: Breast cancer female
  2. IBRANCE [Suspect]
     Active Substance: PALBOCICLIB
     Dates: start: 20220701
  3. COREG [Concomitant]
     Active Substance: CARVEDILOL
  4. DIAZEPAM [Concomitant]
     Active Substance: DIAZEPAM
  5. EXEMESTANE [Concomitant]
     Active Substance: EXEMESTANE
  6. FENOFIBRATE [Concomitant]
     Active Substance: FENOFIBRATE
  7. HYDROCODONE [Concomitant]
     Active Substance: HYDROCODONE
  8. ACETAMINOPHEN [Concomitant]
     Active Substance: ACETAMINOPHEN
  9. MAGNESIUM [Concomitant]
     Active Substance: MAGNESIUM
  10. METHIMAZOLE [Concomitant]
     Active Substance: METHIMAZOLE
  11. SENOKOT [Concomitant]
     Active Substance: SENNOSIDES
  12. VENLAFAXINE [Concomitant]
     Active Substance: VENLAFAXINE HYDROCHLORIDE

REACTIONS (4)
  - Fatigue [Not Recovered/Not Resolved]
  - Asthenia [Not Recovered/Not Resolved]
  - Full blood count decreased [Not Recovered/Not Resolved]
  - Off label use [Unknown]

NARRATIVE: CASE EVENT DATE: 20220701
